FAERS Safety Report 5347400-3 (Version None)
Quarter: 2007Q2

REPORT INFORMATION
  Report Type: 
  Country: None (occurrence: None)
  Receive Date: 20070606
  Receipt Date: 20070530
  Transmission Date: 20071010
  Serious: Yes (Hospitalization)
  Sender: FDA-Public Use
  Company Number: US-ASTRAZENECA-2007UW13038

PATIENT
  Age: 65 Year
  Sex: Male
  Weight: 87.7 kg

DRUGS (6)
  1. IRESSA [Suspect]
     Indication: METASTATIC RENAL CELL CARCINOMA
     Route: 048
     Dates: start: 20050624, end: 20051108
  2. SUNITINIB MALATE [Suspect]
     Indication: METASTATIC RENAL CELL CARCINOMA
     Route: 048
     Dates: start: 20050615, end: 20050712
  3. SUNITINIB MALATE [Suspect]
     Route: 048
     Dates: start: 20050727, end: 20051115
  4. SUNITINIB MALATE [Suspect]
     Route: 048
     Dates: start: 20051129, end: 20051227
  5. PRILOSEC [Concomitant]
     Route: 048
     Dates: start: 20050726
  6. SYNTHROID [Concomitant]
     Indication: HYPOTHYROIDISM
     Dosage: 100 MCG
     Route: 048
     Dates: start: 20050823

REACTIONS (2)
  - RASH [None]
  - SINUS TACHYCARDIA [None]
